FAERS Safety Report 16455347 (Version 1)
Quarter: 2019Q2

REPORT INFORMATION
  Report Type: Spontaneous
  Country: US (occurrence: US)
  Receive Date: 20190619
  Receipt Date: 20190619
  Transmission Date: 20190711
  Serious: No
  Sender: FDA-Public Use
  Company Number: US-ROCHE-2140440

PATIENT
  Age: 57 Year
  Sex: Female

DRUGS (2)
  1. ACTEMRA [Suspect]
     Active Substance: TOCILIZUMAB
     Indication: PRODUCT USED FOR UNKNOWN INDICATION
     Dosage: 162 MG/ 0.9 ML, THERAPY DURATION: 1 MONTH.
     Route: 058
  2. ACTEMRA [Suspect]
     Active Substance: TOCILIZUMAB
     Route: 058
     Dates: start: 20180501, end: 20180711

REACTIONS (5)
  - Skin discolouration [Unknown]
  - Drug ineffective [Unknown]
  - Pruritus [Unknown]
  - Paraesthesia [Unknown]
  - Arthritis [Unknown]

NARRATIVE: CASE EVENT DATE: 20180611
